FAERS Safety Report 7996508-2 (Version None)
Quarter: 2011Q4

REPORT INFORMATION
  Report Type: 
  Country: None (occurrence: None)
  Receive Date: 20111220
  Receipt Date: 20111213
  Transmission Date: 20120403
  Serious: Yes (Other)
  Sender: FDA-Public Use
  Company Number: PHHY2011IN103942

PATIENT
  Age: 61 Year
  Sex: Male

DRUGS (8)
  1. ASPIRIN [Concomitant]
     Dosage: 50 MG, QD
  2. AMLODIPINE [Concomitant]
     Dosage: 7.5 MG, UNK
  3. AMILORIDE HYDROCHLORIDE [Concomitant]
     Dosage: 40 MG, UNK
  4. FUROSEMIDE [Suspect]
     Indication: DIURETIC THERAPY
     Dosage: 40 MG, BID
  5. ATENOLOL [Concomitant]
     Dosage: 75 MG, UNK
  6. TORSEMIDE [Suspect]
     Indication: DIURETIC THERAPY
     Dosage: 20 MG, BID
  7. CEFOTAXIME [Concomitant]
     Dosage: 1 MG, BID
  8. METOLAZONE [Suspect]
     Indication: DIURETIC THERAPY
     Dosage: 5 MG, QD

REACTIONS (3)
  - WHITE BLOOD CELL COUNT DECREASED [None]
  - RENAL FAILURE CHRONIC [None]
  - AZOTAEMIA [None]
